FAERS Safety Report 24683342 (Version 1)
Quarter: 2024Q4

REPORT INFORMATION
  Report Type: Report from Study
  Country: DE (occurrence: DE)
  Receive Date: 20241201
  Receipt Date: 20241201
  Transmission Date: 20250114
  Serious: Yes (Hospitalization)
  Sender: ABBVIE
  Company Number: DE-ABBVIE-5945483

PATIENT
  Age: 54 Year
  Sex: Female

DRUGS (2)
  1. CARBIDOPA\LEVODOPA [Suspect]
     Active Substance: CARBIDOPA\LEVODOPA
     Indication: Parkinson^s disease
     Dosage: MD 4.5 ML; CRD 2.4 ML/H; ED 1.5 M
     Route: 050
     Dates: start: 20240922
  2. CARBIDOPA\LEVODOPA [Suspect]
     Active Substance: CARBIDOPA\LEVODOPA

REACTIONS (3)
  - Abscess rupture [Recovering/Resolving]
  - Gastritis [Recovering/Resolving]
  - Stoma site abscess [Recovering/Resolving]

NARRATIVE: CASE EVENT DATE: 20240901
